FAERS Safety Report 22304953 (Version 1)
Quarter: 2023Q2

REPORT INFORMATION
  Report Type: Spontaneous
  Country: US (occurrence: US)
  Receive Date: 20230510
  Receipt Date: 20230510
  Transmission Date: 20230722
  Serious: No
  Sender: FDA-Public Use
  Company Number: US-JNJFOC-20230514720

PATIENT
  Age: 62 Year
  Sex: Female
  Weight: 83.9 kg

DRUGS (5)
  1. UPTRAVI [Suspect]
     Active Substance: SELEXIPAG
     Indication: Pulmonary arterial hypertension
     Route: 048
  2. TYVASO [Suspect]
     Active Substance: TREPROSTINIL
     Indication: Pulmonary arterial hypertension
     Route: 055
     Dates: start: 20221115
  3. TYVASO [Suspect]
     Active Substance: TREPROSTINIL
     Route: 055
  4. OPSUMIT [Concomitant]
     Active Substance: MACITENTAN
  5. TADALAFIL [Concomitant]
     Active Substance: TADALAFIL

REACTIONS (4)
  - Dyspnoea [Unknown]
  - Cough [Not Recovered/Not Resolved]
  - Gastrointestinal disorder [Unknown]
  - Therapy change [Unknown]
